FAERS Safety Report 13803548 (Version 1)
Quarter: 2017Q3

REPORT INFORMATION
  Report Type: Report from Study
  Country: KR (occurrence: KR)
  Receive Date: 20170728
  Receipt Date: 20170728
  Transmission Date: 20171127
  Serious: Yes (Other)
  Sender: FDA-Public Use
  Company Number: KR-ELI_LILLY_AND_COMPANY-KR201707011248

PATIENT

DRUGS (1)
  1. CETUXIMAB. [Suspect]
     Active Substance: CETUXIMAB
     Indication: COLORECTAL CANCER RECURRENT
     Dosage: UNK, UNKNOWN
     Route: 065

REACTIONS (5)
  - Postoperative abscess [Unknown]
  - Post procedural sepsis [Unknown]
  - Post procedural haemorrhage [Unknown]
  - Pleural effusion [Unknown]
  - Intestinal obstruction [Unknown]
